FAERS Safety Report 18675740 (Version 3)
Quarter: 2021Q1

REPORT INFORMATION
  Report Type: Spontaneous
  Country: JP (occurrence: JP)
  Receive Date: 20201229
  Receipt Date: 20210212
  Transmission Date: 20210419
  Serious: Yes (Death, Hospitalization, Other)
  Sender: FDA-Public Use
  Company Number: JP-ASTRAZENECA-2020SF72528

PATIENT
  Age: 19812 Day
  Sex: Male
  Weight: 66 kg

DRUGS (10)
  1. FASENRA [Suspect]
     Active Substance: BENRALIZUMAB
     Indication: ASTHMA
     Route: 058
     Dates: start: 20200912, end: 20201107
  2. DESALEX [Concomitant]
     Active Substance: DESLORATADINE
     Indication: ASTHMA
     Route: 048
     Dates: start: 20201023, end: 20201221
  3. RELVAR [Concomitant]
     Active Substance: FLUTICASONE FUROATE\VILANTEROL TRIFENATATE
     Indication: ASTHMA
     Dosage: DOSE UNKNOWN, DAILY
     Route: 055
     Dates: start: 20200508, end: 20201221
  4. SPIRIVA [Concomitant]
     Active Substance: TIOTROPIUM BROMIDE MONOHYDRATE
     Indication: ASTHMA
     Route: 055
     Dates: start: 20200508, end: 20201221
  5. CLEANAL [Concomitant]
     Active Substance: FUDOSTEINE
     Indication: ASTHMA
     Route: 048
     Dates: start: 20200215, end: 20201221
  6. MONTELUKAST [Concomitant]
     Active Substance: MONTELUKAST SODIUM
     Indication: ASTHMA
     Route: 048
     Dates: start: 20200215, end: 20201221
  7. NUCALA [Concomitant]
     Active Substance: MEPOLIZUMAB
     Indication: ASTHMA
     Dosage: DOSE UNKNOWN
     Route: 058
     Dates: start: 202002
  8. FASENRA [Suspect]
     Active Substance: BENRALIZUMAB
     Indication: ASTHMA
     Route: 058
     Dates: start: 20200522, end: 20200718
  9. IPD [Concomitant]
     Active Substance: SUPLATAST TOSILATE
     Indication: ASTHMA
     Route: 048
     Dates: start: 20200215, end: 20201221
  10. CLARITHROMYCIN. [Concomitant]
     Active Substance: CLARITHROMYCIN
     Indication: DIFFUSE PANBRONCHIOLITIS
     Route: 048
     Dates: start: 20200215, end: 20201221

REACTIONS (5)
  - Purpura [Unknown]
  - Eosinophil count increased [Fatal]
  - Eosinophilic granulomatosis with polyangiitis [Unknown]
  - Pneumonia [Not Recovered/Not Resolved]
  - Myalgia [Unknown]

NARRATIVE: CASE EVENT DATE: 20201120
